FAERS Safety Report 10277913 (Version 1)
Quarter: 2014Q3

REPORT INFORMATION
  Report Type: Spontaneous
  Country: GB (occurrence: GB)
  Receive Date: 20140704
  Receipt Date: 20140704
  Transmission Date: 20150326
  Serious: Yes (Hospitalization)
  Sender: FDA-Public Use
  Company Number: GB-009507513-1407GBR000181

PATIENT
  Sex: Male

DRUGS (2)
  1. INTRON A [Suspect]
     Active Substance: INTERFERON ALFA-2B
     Indication: LEUKAEMIA
  2. INTRON A [Suspect]
     Active Substance: INTERFERON ALFA-2B
     Indication: BONE MARROW DISORDER
     Dosage: 1 MEGA 3 TIMES A WEEK

REACTIONS (2)
  - Off label use [Unknown]
  - Adverse event [Unknown]
